FAERS Safety Report 8724176 (Version 2)
Quarter: 2012Q4

REPORT INFORMATION
  Report Type: Spontaneous
  Country: US (occurrence: None)
  Receive Date: 20120726
  Receipt Date: 20120830
  Transmission Date: 20130627
  Serious: Yes (Other)
  Sender: FDA-Public Use
  Company Number: CC070612

PATIENT
  Age: 83 Year
  Sex: Female
  Weight: 43.09 kg

DRUGS (2)
  1. ATROPINE SULFATE\HYOSCYAMINE SULFATE\PHENOBARBITAL\SCOPOLAMINE HYDROBROMIDE [Suspect]
     Indication: IRRITABLE BOWEL SYNDROME
     Dosage: 1 TSP/Q4H@100 LBS
     Route: 048
     Dates: start: 20120705
  2. HYZAAR [Concomitant]

REACTIONS (5)
  - Cough [None]
  - Nausea [None]
  - Vomiting [None]
  - Anxiety [None]
  - Throat irritation [None]
